FAERS Safety Report 6156191-8 (Version None)
Quarter: 2009Q2

REPORT INFORMATION
  Report Type: 
  Country: None (occurrence: None)
  Receive Date: 20090410
  Receipt Date: 20090410
  Transmission Date: 20091009
  Serious: Yes (Disabling)
  Sender: FDA-Public Use
  Company Number: None

PATIENT
  Age: 25 Year
  Sex: Female
  Weight: 90.2658 kg

DRUGS (1)
  1. MIRENA [Suspect]
     Indication: CONTRACEPTION
     Dates: start: 20070901, end: 20090406

REACTIONS (8)
  - ABDOMINAL PAIN [None]
  - ACNE [None]
  - ANXIETY [None]
  - BACK PAIN [None]
  - BREAST TENDERNESS [None]
  - INTRAUTERINE INFECTION [None]
  - MUSCLE SPASMS [None]
  - WEIGHT INCREASED [None]
